FAERS Safety Report 24575449 (Version 3)
Quarter: 2025Q3

REPORT INFORMATION
  Report Type: Report from Study
  Country: BR (occurrence: BR)
  Receive Date: 20241104
  Receipt Date: 20250803
  Transmission Date: 20251020
  Serious: Yes (Other)
  Sender: ALEXION PHARMACEUTICALS
  Company Number: BR-AstraZeneca-CH-00727401A

PATIENT
  Age: 73 Year
  Sex: Male

DRUGS (2)
  1. DAPAGLIFLOZIN [Suspect]
     Active Substance: DAPAGLIFLOZIN
     Indication: Type 2 diabetes mellitus
  2. DAPAGLIFLOZIN [Suspect]
     Active Substance: DAPAGLIFLOZIN
     Route: 065

REACTIONS (12)
  - Bladder cancer [Recovered/Resolved with Sequelae]
  - Neoplasm malignant [Recovered/Resolved with Sequelae]
  - Renal cyst [Unknown]
  - Hypotension [Recovered/Resolved]
  - Asthenia [Recovered/Resolved]
  - Pollakiuria [Recovered/Resolved]
  - Urine odour abnormal [Recovered/Resolved]
  - Decreased appetite [Recovered/Resolved]
  - Penile erythema [Recovered/Resolved]
  - Chromaturia [Unknown]
  - Somnolence [Unknown]
  - Malaise [Unknown]

NARRATIVE: CASE EVENT DATE: 20240822
